FAERS Safety Report 9906576 (Version 3)
Quarter: 2014Q1

REPORT INFORMATION
  Report Type: Spontaneous
  Country: AT (occurrence: AT)
  Receive Date: 20140218
  Receipt Date: 20140314
  Transmission Date: 20141002
  Serious: Yes (Hospitalization, Other)
  Sender: FDA-Public Use
  Company Number: AT-009507513-1402AUT004816

PATIENT
  Age: 47 Year
  Sex: Female

DRUGS (1)
  1. IMPLANON [Suspect]
     Indication: CONTRACEPTION
     Dosage: ROUTE OF ADMINISTRATION: INSERTION, LEFT ARM
     Route: 059
     Dates: start: 20101005

REACTIONS (6)
  - Device difficult to use [Not Recovered/Not Resolved]
  - Surgery [Unknown]
  - General anaesthesia [Unknown]
  - Device difficult to use [Not Recovered/Not Resolved]
  - Medical device complication [Recovered/Resolved]
  - Incorrect drug administration duration [Unknown]
